FAERS Safety Report 25671073 (Version 1)
Quarter: 2025Q3

REPORT INFORMATION
  Report Type: Spontaneous
  Country: EU (occurrence: EU)
  Receive Date: 20250812
  Receipt Date: 20250812
  Transmission Date: 20251021
  Serious: Yes (Other)
  Sender: MYLAN
  Company Number: None

PATIENT
  Age: 62 Year
  Sex: Female
  Weight: 56 kg

DRUGS (40)
  1. ESOMEPRAZOLE [Suspect]
     Active Substance: ESOMEPRAZOLE
     Indication: Product used for unknown indication
     Dosage: 40 MILLIGRAM, QD
     Dates: start: 20250610, end: 20250721
  2. ESOMEPRAZOLE [Suspect]
     Active Substance: ESOMEPRAZOLE
     Dosage: 40 MILLIGRAM, QD
     Route: 048
     Dates: start: 20250610, end: 20250721
  3. ESOMEPRAZOLE [Suspect]
     Active Substance: ESOMEPRAZOLE
     Dosage: 40 MILLIGRAM, QD
     Route: 048
     Dates: start: 20250610, end: 20250721
  4. ESOMEPRAZOLE [Suspect]
     Active Substance: ESOMEPRAZOLE
     Dosage: 40 MILLIGRAM, QD
     Dates: start: 20250610, end: 20250721
  5. CISPLATIN [Suspect]
     Active Substance: CISPLATIN
     Indication: Laryngeal cancer
     Dates: start: 20250610, end: 20250613
  6. CISPLATIN [Suspect]
     Active Substance: CISPLATIN
     Dates: start: 20250610, end: 20250613
  7. CISPLATIN [Suspect]
     Active Substance: CISPLATIN
     Route: 042
     Dates: start: 20250610, end: 20250613
  8. CISPLATIN [Suspect]
     Active Substance: CISPLATIN
     Route: 042
     Dates: start: 20250610, end: 20250613
  9. CISPLATIN [Suspect]
     Active Substance: CISPLATIN
     Dates: start: 20250630, end: 20250703
  10. CISPLATIN [Suspect]
     Active Substance: CISPLATIN
     Dates: start: 20250630, end: 20250703
  11. CISPLATIN [Suspect]
     Active Substance: CISPLATIN
     Route: 042
     Dates: start: 20250630, end: 20250703
  12. CISPLATIN [Suspect]
     Active Substance: CISPLATIN
     Route: 042
     Dates: start: 20250630, end: 20250703
  13. DOCETAXEL [Suspect]
     Active Substance: DOCETAXEL
     Indication: Laryngeal cancer
     Dates: start: 20250612, end: 20250612
  14. DOCETAXEL [Suspect]
     Active Substance: DOCETAXEL
     Dates: start: 20250612, end: 20250612
  15. DOCETAXEL [Suspect]
     Active Substance: DOCETAXEL
     Route: 042
     Dates: start: 20250612, end: 20250612
  16. DOCETAXEL [Suspect]
     Active Substance: DOCETAXEL
     Route: 042
     Dates: start: 20250612, end: 20250612
  17. DOCETAXEL [Suspect]
     Active Substance: DOCETAXEL
     Dates: start: 20250702, end: 20250702
  18. DOCETAXEL [Suspect]
     Active Substance: DOCETAXEL
     Dates: start: 20250702, end: 20250702
  19. DOCETAXEL [Suspect]
     Active Substance: DOCETAXEL
     Route: 042
     Dates: start: 20250702, end: 20250702
  20. DOCETAXEL [Suspect]
     Active Substance: DOCETAXEL
     Route: 042
     Dates: start: 20250702, end: 20250702
  21. FLUOROURACIL [Suspect]
     Active Substance: FLUOROURACIL
     Indication: Laryngeal cancer
     Route: 042
     Dates: start: 20250610, end: 20250610
  22. FLUOROURACIL [Suspect]
     Active Substance: FLUOROURACIL
     Dates: start: 20250610, end: 20250610
  23. FLUOROURACIL [Suspect]
     Active Substance: FLUOROURACIL
     Dates: start: 20250610, end: 20250610
  24. FLUOROURACIL [Suspect]
     Active Substance: FLUOROURACIL
     Route: 042
     Dates: start: 20250610, end: 20250610
  25. FLUOROURACIL [Suspect]
     Active Substance: FLUOROURACIL
     Route: 042
     Dates: start: 20250612, end: 20250612
  26. FLUOROURACIL [Suspect]
     Active Substance: FLUOROURACIL
     Dates: start: 20250612, end: 20250612
  27. FLUOROURACIL [Suspect]
     Active Substance: FLUOROURACIL
     Dates: start: 20250612, end: 20250612
  28. FLUOROURACIL [Suspect]
     Active Substance: FLUOROURACIL
     Route: 042
     Dates: start: 20250612, end: 20250612
  29. FLUOROURACIL [Suspect]
     Active Substance: FLUOROURACIL
     Dates: start: 20250630, end: 20250630
  30. FLUOROURACIL [Suspect]
     Active Substance: FLUOROURACIL
     Dates: start: 20250630, end: 20250630
  31. FLUOROURACIL [Suspect]
     Active Substance: FLUOROURACIL
     Route: 042
     Dates: start: 20250630, end: 20250630
  32. FLUOROURACIL [Suspect]
     Active Substance: FLUOROURACIL
     Route: 042
     Dates: start: 20250630, end: 20250630
  33. FLUOROURACIL [Suspect]
     Active Substance: FLUOROURACIL
     Dates: start: 20250702, end: 20250702
  34. FLUOROURACIL [Suspect]
     Active Substance: FLUOROURACIL
     Dates: start: 20250702, end: 20250702
  35. FLUOROURACIL [Suspect]
     Active Substance: FLUOROURACIL
     Route: 042
     Dates: start: 20250702, end: 20250702
  36. FLUOROURACIL [Suspect]
     Active Substance: FLUOROURACIL
     Route: 042
     Dates: start: 20250702, end: 20250702
  37. VALACYCLOVIR HYDROCHLORIDE [Suspect]
     Active Substance: VALACYCLOVIR HYDROCHLORIDE
     Indication: Product used for unknown indication
     Dosage: 500 MILLIGRAM, QD
     Dates: start: 20250610, end: 20250721
  38. VALACYCLOVIR HYDROCHLORIDE [Suspect]
     Active Substance: VALACYCLOVIR HYDROCHLORIDE
     Dosage: 500 MILLIGRAM, QD
     Route: 048
     Dates: start: 20250610, end: 20250721
  39. VALACYCLOVIR HYDROCHLORIDE [Suspect]
     Active Substance: VALACYCLOVIR HYDROCHLORIDE
     Dosage: 500 MILLIGRAM, QD
     Route: 048
     Dates: start: 20250610, end: 20250721
  40. VALACYCLOVIR HYDROCHLORIDE [Suspect]
     Active Substance: VALACYCLOVIR HYDROCHLORIDE
     Dosage: 500 MILLIGRAM, QD
     Dates: start: 20250610, end: 20250721

REACTIONS (2)
  - Hepatic cytolysis [Not Recovered/Not Resolved]
  - Cholestasis [Not Recovered/Not Resolved]

NARRATIVE: CASE EVENT DATE: 20250717
